FAERS Safety Report 8916664 (Version 1)
Quarter: 2012Q4

REPORT INFORMATION
  Report Type: 
  Country: JP (occurrence: JP)
  Receive Date: 20121120
  Receipt Date: 20121120
  Transmission Date: 20130627
  Serious: Yes (Hospitalization)
  Sender: FDA-Public Use
  Company Number: JP-009507513-2012SP036768

PATIENT
  Age: 65 Year
  Sex: Male
  Weight: 63 kg

DRUGS (15)
  1. PEGINTRON [Suspect]
     Indication: CHRONIC HEPATITIS C
     Dosage: 1.5 microgram/kg/week
     Route: 058
     Dates: start: 20120301, end: 20120328
  2. PEGINTRON [Suspect]
     Dosage: 50 mcg/body/week
     Route: 058
     Dates: start: 20120404
  3. REBETOL [Suspect]
     Indication: CHRONIC HEPATITIS C
     Dosage: 800 mg, QD
     Route: 048
     Dates: start: 20120301, end: 20120305
  4. REBETOL [Suspect]
     Dosage: 400 mg, QD
     Route: 048
     Dates: start: 20120306
  5. TELAVIC [Suspect]
     Indication: CHRONIC HEPATITIS C
     Dosage: 2250 mg, QD
     Route: 048
     Dates: start: 20120301, end: 20120306
  6. TELAVIC [Suspect]
     Dosage: 1500 mg, QD
     Route: 048
     Dates: start: 20120307, end: 20120410
  7. TELAVIC [Suspect]
     Dosage: 750 mg, QD
     Route: 048
     Dates: start: 20120411, end: 20120418
  8. MUCOSTA [Concomitant]
     Indication: PROPHYLAXIS
     Dosage: 300 mg/day, as needed, Formulation: POR
     Route: 048
  9. MUCOSTA [Concomitant]
     Dosage: 100 mg/day, as needed
     Route: 048
  10. SM POWDER [Concomitant]
     Indication: CHRONIC HEPATITIS C
     Dosage: 1.5 g, qd
     Route: 048
  11. BIOFERMIN (BACILLUS SUBTILIS (+) LACTOBACILLUS ACIDOPHILUS (+) STREPTO [Concomitant]
     Indication: PROPHYLAXIS
     Dosage: 1.5 g, qd, Formulation: POR
     Route: 048
     Dates: end: 20120417
  12. FLOMOX [Concomitant]
     Indication: PROPHYLAXIS
     Dosage: 300 mg, qd, Formulation: POR
     Route: 048
     Dates: start: 20120307, end: 20120309
  13. PREDNISOLONE [Concomitant]
     Indication: RASH
     Dosage: 30 mg, qd, Formulation: POR
     Route: 048
     Dates: start: 20120418, end: 20120420
  14. PARIET [Concomitant]
     Indication: PROPHYLAXIS
     Dosage: 10 mg, qd, Formulation: POR
     Route: 048
     Dates: start: 20120418
  15. PRIMPERAN [Concomitant]
     Indication: PROPHYLAXIS
     Dosage: 5 mg/day. as needed, Formulation: POR
     Route: 048

REACTIONS (1)
  - Toxic skin eruption [Recovered/Resolved]
